FAERS Safety Report 8027183-9 (Version None)
Quarter: 2012Q1

REPORT INFORMATION
  Report Type: 
  Country: None (occurrence: None)
  Receive Date: 20120106
  Receipt Date: 20111223
  Transmission Date: 20120608
  Serious: Yes (Other)
  Sender: FDA-Public Use
  Company Number: DE-UCBSA-016759

PATIENT
  Sex: Male

DRUGS (5)
  1. TOPIRAMATE [Concomitant]
     Indication: EPILEPSY
     Dosage: SINGLE DOSE: 600 (UNITS UNKNOWN),  DAILY DOSE:1800 (UNITS UNKNOWN),
     Route: 048
     Dates: start: 20070101
  2. OXCARBAZEPINE [Suspect]
  3. OXCARBAZEPINE [Suspect]
     Dosage: UPTITRATED DOSE
  4. VIMPAT [Suspect]
     Indication: EPILEPSY
     Dosage: SINGLE DOSE: 150 (UNITS UNSPECIFIED); DAILY DOSE:450 (UNITS UNSPECIFIED)
     Route: 048
     Dates: start: 20100501
  5. TOPIRAMATE [Concomitant]
     Dosage: DOSE REDUCED

REACTIONS (1)
  - BUNDLE BRANCH BLOCK [None]
